FAERS Safety Report 12924604 (Version 2)
Quarter: 2016Q4

REPORT INFORMATION
  Report Type: Spontaneous
  Country: FR (occurrence: FR)
  Receive Date: 20161109
  Receipt Date: 20161111
  Transmission Date: 20170207
  Serious: Yes (Death, Life-Threatening)
  Sender: FDA-Public Use
  Company Number: FR-PFIZER INC-2016513753

PATIENT
  Age: 82 Year
  Sex: Male

DRUGS (24)
  1. STILNOX [Concomitant]
     Active Substance: ZOLPIDEM TARTRATE
     Dosage: 10 MG, 1X/DAY, IF REQUIRED
  2. NOVORAPID [Concomitant]
     Active Substance: INSULIN ASPART
     Dosage: UNK UNK, AS NEEDED ACCORDING TO BLOOD GLUCOSE LEVEL
  3. DOCETAXEL. [Suspect]
     Active Substance: DOCETAXEL
     Dosage: 4TH COURSE
     Route: 042
     Dates: start: 20160926
  4. MOPRAL [Concomitant]
     Active Substance: OMEPRAZOLE SODIUM
  5. SECTRAL [Concomitant]
     Active Substance: ACEBUTOLOL HYDROCHLORIDE
  6. XTANDI [Concomitant]
     Active Substance: ENZALUTAMIDE
     Indication: MOTOR DYSFUNCTION
  7. LANSOPRAZOLE. [Concomitant]
     Active Substance: LANSOPRAZOLE
     Dosage: 30 MG, 1X/DAY
  8. DOCETAXEL. [Suspect]
     Active Substance: DOCETAXEL
     Indication: PROSTATE CANCER METASTATIC
     Dosage: 1ST COURSE
     Route: 042
     Dates: start: 20160819
  9. DOCETAXEL. [Suspect]
     Active Substance: DOCETAXEL
     Dosage: 3RD COURSE
     Route: 042
     Dates: start: 20160913
  10. AMLODIPINE [Concomitant]
     Active Substance: AMLODIPINE BESYLATE
     Dosage: 10 MG, 1X/DAY
  11. DOCETAXEL. [Suspect]
     Active Substance: DOCETAXEL
     Dosage: 2ND COURSE
     Route: 042
     Dates: start: 20160830
  12. XGEVA [Suspect]
     Active Substance: DENOSUMAB
     Indication: PROSTATE CANCER METASTATIC
     Dosage: 1ST COURSE
     Route: 058
     Dates: start: 201608
  13. APROVEL [Concomitant]
     Active Substance: IRBESARTAN
  14. CORDARONE [Concomitant]
     Active Substance: AMIODARONE HYDROCHLORIDE
     Dosage: 200 MG, 1X/DAY, 5 DAYS OUT OF 7
  15. PREDNISONE. [Concomitant]
     Active Substance: PREDNISONE
  16. LANTUS [Concomitant]
     Active Substance: INSULIN GLARGINE
     Dosage: 32 IU, 1X/DAY
  17. XARELTO [Concomitant]
     Active Substance: RIVAROXABAN
     Dosage: 15 MG, 1X/DAY
  18. LEVOTHYROX [Concomitant]
     Active Substance: LEVOTHYROXINE
     Dosage: 25 UG, 1X/DAY
  19. XTANDI [Concomitant]
     Active Substance: ENZALUTAMIDE
     Indication: PYREXIA
     Dosage: 160 MG, 1X/DAY
  20. CETIRIZINE [Concomitant]
     Active Substance: CETIRIZINE HYDROCHLORIDE
     Dosage: 1 DF, 1X/DAY
  21. AMLOR [Concomitant]
     Active Substance: AMLODIPINE BESYLATE
  22. DOCETAXEL. [Suspect]
     Active Substance: DOCETAXEL
     Dosage: 5TH COURSE
     Route: 042
     Dates: start: 20161011
  23. SPASFON [Concomitant]
     Active Substance: PHLOROGLUCINOL
  24. ACEBUTOLOL [Concomitant]
     Active Substance: ACEBUTOLOL
     Dosage: 200 MG, 1X/DAY

REACTIONS (1)
  - Cardiac failure [Fatal]

NARRATIVE: CASE EVENT DATE: 20160912
